FAERS Safety Report 7621363-X (Version None)
Quarter: 2011Q3

REPORT INFORMATION
  Report Type: 
  Country: None (occurrence: None)
  Receive Date: 20110719
  Receipt Date: 20110715
  Transmission Date: 20111222
  Serious: Yes (Other)
  Sender: FDA-Public Use
  Company Number: US-SANOFI-AVENTIS-2011SA045534

PATIENT
  Age: 78 Year
  Sex: Male

DRUGS (1)
  1. PLAVIX [Suspect]
     Route: 048
     Dates: start: 20090101

REACTIONS (5)
  - DIARRHOEA [None]
  - VISUAL IMPAIRMENT [None]
  - JAUNDICE [None]
  - TRANSIENT ISCHAEMIC ATTACK [None]
  - PYREXIA [None]
